FAERS Safety Report 6880961-1 (Version None)
Quarter: 2010Q3

REPORT INFORMATION
  Report Type: 
  Country: None (occurrence: None)
  Receive Date: 20100728
  Receipt Date: 20100719
  Transmission Date: 20110219
  Serious: Yes (Hospitalization, Other)
  Sender: FDA-Public Use
  Company Number: FR-PFIZER INC-2010089675

PATIENT
  Age: 84 Year
  Sex: Male

DRUGS (12)
  1. XANAX [Suspect]
     Indication: ANXIETY
     Dosage: 0.25 MG, 3X/DAY
     Route: 048
     Dates: end: 20100607
  2. IXPRIM [Suspect]
     Indication: MUSCULOSKELETAL CHEST PAIN
     Dosage: 2 TABLETS/DAY
     Route: 048
     Dates: start: 20100604, end: 20100607
  3. ZOPICLONE [Suspect]
     Indication: INSOMNIA
     Dosage: 1 TABLET/DAY
     Route: 048
     Dates: end: 20100607
  4. VIRLIX [Suspect]
     Dosage: 10 MG, 1X/DAY
     Route: 048
     Dates: end: 20100607
  5. DAFALGAN CODEINE [Suspect]
     Indication: PAIN
     Dosage: UNK
     Route: 048
     Dates: start: 20100604, end: 20100607
  6. LOPERAMIDE [Suspect]
     Dosage: UNK
     Route: 048
     Dates: end: 20100607
  7. ESCITALOPRAM [Suspect]
     Dosage: UNK
     Route: 048
     Dates: end: 20100607
  8. XATRAL [Suspect]
     Dosage: UNK
     Route: 048
     Dates: end: 20100607
  9. COAPROVEL [Suspect]
     Dosage: 300 MG, UNK
     Route: 048
     Dates: end: 20100607
  10. GLUCOR [Concomitant]
     Dosage: 100 MG, 3X/DAY
  11. PREVISCAN [Concomitant]
  12. PARACETAMOL [Concomitant]
     Indication: MUSCULOSKELETAL CHEST PAIN

REACTIONS (3)
  - OVERDOSE [None]
  - RENAL FAILURE ACUTE [None]
  - SOMNOLENCE [None]
